FAERS Safety Report 17526088 (Version 1)
Quarter: 2020Q1

REPORT INFORMATION
  Report Type: Spontaneous
  Country: IT (occurrence: IT)
  Receive Date: 20200311
  Receipt Date: 20200311
  Transmission Date: 20200409
  Serious: Yes (Life-Threatening, Hospitalization, Other)
  Sender: FDA-Public Use
  Company Number: IT-ACCORD-175221

PATIENT
  Age: 57 Year

DRUGS (3)
  1. MYCOPHENOLATE MOFETIL/MYCOPHENOLATE SODIUM/MYCOPHENOLIC ACID [Suspect]
     Active Substance: MYCOPHENOLIC ACID
     Indication: IMMUNOSUPPRESSANT DRUG THERAPY
  2. TACROLIMUS. [Suspect]
     Active Substance: TACROLIMUS
     Indication: IMMUNOSUPPRESSANT DRUG THERAPY
  3. BASILIXIMAB [Suspect]
     Active Substance: BASILIXIMAB
     Indication: IMMUNOSUPPRESSANT DRUG THERAPY

REACTIONS (13)
  - Arterial haemorrhage [Recovered/Resolved]
  - Staphylococcal infection [Recovered/Resolved]
  - Arterial rupture [Recovered/Resolved]
  - Arteritis infective [Recovered/Resolved]
  - Renal aneurysm [Recovered/Resolved]
  - Renal arteritis [Recovered/Resolved]
  - Necrosis of artery [Recovered/Resolved]
  - Arterial fibrosis [Recovered/Resolved]
  - Sepsis [Recovered/Resolved]
  - Enterococcal infection [Recovered/Resolved]
  - Candida infection [Recovered/Resolved]
  - Wound infection pseudomonas [Recovered/Resolved]
  - Renal artery arteriosclerosis [Recovered/Resolved]
